FAERS Safety Report 5450530-9 (Version None)
Quarter: 2007Q3

REPORT INFORMATION
  Report Type: 
  Country: None (occurrence: None)
  Receive Date: 20070806
  Receipt Date: 20060718
  Transmission Date: 20080115
  Serious: Yes (Other)
  Sender: FDA-Public Use
  Company Number: 29058

PATIENT
  Age: 57 Year
  Sex: Female
  Weight: 90.7194 kg

DRUGS (7)
  1. MIDAZOLAM HCL [Suspect]
     Indication: SEDATION
     Dosage: IV
     Route: 042
     Dates: start: 20060715
  2. AVANDIA [Concomitant]
  3. ATENOLOL [Concomitant]
  4. HLTZ [Concomitant]
  5. DIOUUN [Concomitant]
  6. LIPITOR [Concomitant]
  7. CALCIUM [Concomitant]

REACTIONS (1)
  - DRUG INEFFECTIVE [None]
